FAERS Safety Report 5747796-4 (Version None)
Quarter: 2008Q2

REPORT INFORMATION
  Report Type: 
  Country: None (occurrence: None)
  Receive Date: 20080523
  Receipt Date: 20080520
  Transmission Date: 20081010
  Serious: Yes (Other)
  Sender: FDA-Public Use
  Company Number: A0728823A

PATIENT
  Age: 77 Year
  Sex: Male

DRUGS (13)
  1. FLOVENT [Suspect]
     Indication: BRONCHIOLITIS
     Dosage: 2SPR TWICE PER DAY
     Route: 055
  2. NEXIUM [Concomitant]
  3. HYTRIN [Concomitant]
  4. PREDNISONE TAB [Concomitant]
  5. BONIVA [Concomitant]
  6. CALCIUM CITRATE [Concomitant]
  7. GLUCOSAMINE SULFATE [Concomitant]
  8. VALERIAN [Concomitant]
  9. ASPIRIN [Concomitant]
  10. VITAMIN D3 [Concomitant]
  11. VITAMIN B1 [Concomitant]
  12. MULTIVITAMIN W/OUT IRON [Concomitant]
  13. BECONASE AQUEOUS [Concomitant]

REACTIONS (5)
  - COUGH [None]
  - DISCOMFORT [None]
  - PHARMACEUTICAL PRODUCT COMPLAINT [None]
  - PULMONARY CONGESTION [None]
  - RESPIRATORY TRACT CONGESTION [None]
